FAERS Safety Report 16770454 (Version 2)
Quarter: 2019Q3

REPORT INFORMATION
  Report Type: Report from Study
  Country: JP (occurrence: JP)
  Receive Date: 20190904
  Receipt Date: 20190906
  Transmission Date: 20191005
  Serious: Yes (Other)
  Sender: FDA-Public Use
  Company Number: JP-ACTELION-A-CH2017-162609

PATIENT
  Age: 65 Year
  Sex: Female

DRUGS (20)
  1. UPTRAVI [Suspect]
     Active Substance: SELEXIPAG
     Dosage: 0.6 MG, BID
     Route: 048
     Dates: start: 20170425, end: 20170508
  2. OPSUMIT [Suspect]
     Active Substance: MACITENTAN
     Indication: PULMONARY ARTERIAL HYPERTENSION
     Dosage: 10 MG, QD
     Route: 048
     Dates: start: 20151027
  3. UPTRAVI [Suspect]
     Active Substance: SELEXIPAG
     Dosage: 0.8 MG, BID
     Route: 048
     Dates: start: 20170704, end: 20171211
  4. UPTRAVI [Suspect]
     Active Substance: SELEXIPAG
     Dosage: 1.0 + 0.8 MG, QD
     Route: 048
     Dates: start: 20171212
  5. EDIROL [Concomitant]
     Active Substance: ELDECALCITOL
  6. NEXIUM [Concomitant]
     Active Substance: ESOMEPRAZOLE MAGNESIUM
  7. NIFEDIPINE. [Concomitant]
     Active Substance: NIFEDIPINE
  8. ALFAROL [Concomitant]
     Active Substance: ALFACALCIDOL
  9. RHEUMATREX [Concomitant]
     Active Substance: METHOTREXATE SODIUM
  10. WARFARIN [Concomitant]
     Active Substance: WARFARIN
  11. OXYGEN. [Concomitant]
     Active Substance: OXYGEN
  12. MOHRUS [Concomitant]
     Active Substance: KETOPROFEN
  13. PRALIA [Concomitant]
     Active Substance: DENOSUMAB
  14. UPTRAVI [Suspect]
     Active Substance: SELEXIPAG
     Indication: PULMONARY ARTERIAL HYPERTENSION
     Dosage: 0.2 MG, BID
     Route: 048
     Dates: start: 20170328, end: 20170410
  15. UPTRAVI [Suspect]
     Active Substance: SELEXIPAG
     Dosage: 0.8 MG, QD
     Route: 048
     Dates: start: 20170509, end: 20170619
  16. BERASUS [Concomitant]
     Active Substance: BERAPROST SODIUM
  17. ADCIRCA [Concomitant]
     Active Substance: TADALAFIL
  18. FOLIAMIN [Concomitant]
     Active Substance: FOLIC ACID
  19. UPTRAVI [Suspect]
     Active Substance: SELEXIPAG
     Dosage: 0.4 MG, BID
     Route: 048
     Dates: start: 20170411, end: 20170424
  20. UPTRAVI [Suspect]
     Active Substance: SELEXIPAG
     Dosage: 1 MG, BID
     Route: 048
     Dates: start: 20170620, end: 20170703

REACTIONS (20)
  - Dermatophytosis of nail [Not Recovered/Not Resolved]
  - Tooth extraction [Recovered/Resolved]
  - Portal hypertension [Not Recovered/Not Resolved]
  - Rhinitis [Recovered/Resolved]
  - Colitis [Recovering/Resolving]
  - Varices oesophageal [Not Recovered/Not Resolved]
  - Portal vein dilatation [Not Recovered/Not Resolved]
  - Retinal haemorrhage [Recovered/Resolved]
  - Gastrointestinal disorder [Recovering/Resolving]
  - Nausea [Recovered/Resolved]
  - Diarrhoea [Not Recovered/Not Resolved]
  - Posterior capsule opacification [Recovered/Resolved]
  - Eczema [Recovered/Resolved]
  - Periodontitis [Recovered/Resolved]
  - Hepatosplenomegaly [Not Recovered/Not Resolved]
  - Cataract operation [Recovered/Resolved]
  - Keratitis [Not Recovered/Not Resolved]
  - Bacterial disease carrier [Not Recovered/Not Resolved]
  - Dental caries [Recovered/Resolved]
  - Primary biliary cholangitis [Not Recovered/Not Resolved]

NARRATIVE: CASE EVENT DATE: 20151211
